FAERS Safety Report 22891639 (Version 3)
Quarter: 2024Q1

REPORT INFORMATION
  Report Type: Report from Study
  Country: US (occurrence: US)
  Receive Date: 20230901
  Receipt Date: 20240213
  Transmission Date: 20240409
  Serious: Yes (Death, Hospitalization, Other)
  Sender: FDA-Public Use
  Company Number: US-ACADIA PHARMACEUTICALS INC.-ACA-2023-PIM-003680

PATIENT
  Age: 68 Year
  Sex: Male

DRUGS (1)
  1. NUPLAZID [Suspect]
     Active Substance: PIMAVANSERIN TARTRATE
     Indication: Parkinson^s disease
     Dosage: 34 MILLIGRAM, QD
     Route: 048
     Dates: start: 202210

REACTIONS (9)
  - Parkinson^s disease [Recovered/Resolved]
  - Spinal cord haematoma [Unknown]
  - Parkinson^s disease [Recovering/Resolving]
  - Arrhythmia [Unknown]
  - Spinal fracture [Unknown]
  - Fall [Unknown]
  - Dyspepsia [Unknown]
  - Sleep disorder [Unknown]
  - Confusional state [Unknown]

NARRATIVE: CASE EVENT DATE: 20230708
